FAERS Safety Report 12233075 (Version 3)
Quarter: 2017Q2

REPORT INFORMATION
  Report Type: Report from Study
  Country: US (occurrence: US)
  Receive Date: 20160403
  Receipt Date: 20170526
  Transmission Date: 20170830
  Serious: No
  Sender: FDA-Public Use
  Company Number: US-AMGEN-USASL2016039566

PATIENT
  Age: 53 Year
  Sex: Female

DRUGS (1)
  1. ENBREL [Suspect]
     Active Substance: ETANERCEPT
     Indication: RHEUMATOID ARTHRITIS
     Dosage: 50 MG, QWK
     Route: 065
     Dates: end: 2016

REACTIONS (6)
  - Corneal scar [Unknown]
  - Condition aggravated [Unknown]
  - Somnolence [Not Recovered/Not Resolved]
  - Unevaluable event [Unknown]
  - Fatigue [Unknown]
  - Drug ineffective [Unknown]
